FAERS Safety Report 6465209-4 (Version None)
Quarter: 2009Q4

REPORT INFORMATION
  Report Type: 
  Country: None (occurrence: None)
  Receive Date: 20091201
  Receipt Date: 20091124
  Transmission Date: 20100525
  Serious: Yes (Death, Other)
  Sender: FDA-Public Use
  Company Number: US-CELGENEUS-163-21880-09090709

PATIENT
  Sex: Male

DRUGS (3)
  1. REVLIMID [Suspect]
     Indication: MULTIPLE MYELOMA
     Route: 048
     Dates: start: 20071001, end: 20090508
  2. REVLIMID [Suspect]
     Route: 048
     Dates: start: 20061201
  3. REVLIMID [Suspect]
     Dosage: 5-10MG
     Route: 048
     Dates: start: 20060401

REACTIONS (3)
  - DISEASE PROGRESSION [None]
  - MULTIPLE MYELOMA [None]
  - RENAL FAILURE [None]
